FAERS Safety Report 8833236 (Version 1)
Quarter: 2012Q4

REPORT INFORMATION
  Report Type: 
  Country: IN (occurrence: IN)
  Receive Date: 20121010
  Receipt Date: 20121010
  Transmission Date: 20130627
  Serious: Yes (Hospitalization)
  Sender: FDA-Public Use
  Company Number: PHHY2012IN088435

PATIENT
  Sex: Male

DRUGS (4)
  1. GLIVEC [Suspect]
     Indication: CHRONIC MYELOID LEUKAEMIA
     Dosage: 400 mg, UNK
     Dates: start: 20081029
  2. GLIVEC [Suspect]
     Dosage: 300 mg, UNK
     Dates: start: 20110325
  3. GLIVEC [Suspect]
     Dosage: 400 mg, UNK
     Dates: start: 20110624
  4. GLIVEC [Suspect]
     Dosage: 300 mg, UNK
     Dates: start: 20120124

REACTIONS (3)
  - Transfusion related complication [Unknown]
  - Drug intolerance [Unknown]
  - Thrombocytopenia [Unknown]
